FAERS Safety Report 7375711-9 (Version None)
Quarter: 2011Q1

REPORT INFORMATION
  Report Type: 
  Country: None (occurrence: None)
  Receive Date: 20110325
  Receipt Date: 20110322
  Transmission Date: 20110831
  Serious: Yes (Other)
  Sender: FDA-Public Use
  Company Number: US-PFIZER INC-2011063813

PATIENT
  Age: 19 Year
  Sex: Female

DRUGS (2)
  1. VFEND [Suspect]
     Indication: PNEUMONIA FUNGAL
     Dosage: 320 MG, 2X/DAY
     Route: 042
     Dates: start: 20110312, end: 20110316
  2. VFEND [Suspect]
     Dosage: 320 MG, 2X/DAY
     Route: 048
     Dates: start: 20110317

REACTIONS (1)
  - RASH GENERALISED [None]
